FAERS Safety Report 9384444 (Version 1)
Quarter: 2013Q3

REPORT INFORMATION
  Report Type: Spontaneous
  Country: US (occurrence: US)
  Receive Date: 20130705
  Receipt Date: 20130705
  Transmission Date: 20140515
  Serious: Yes (Other)
  Sender: FDA-Public Use
  Company Number: US-JNJCP-30000167859

PATIENT
  Sex: Female

DRUGS (9)
  1. JOHNSONS BABY INTENSE MOISTURE CREAM [Suspect]
     Indication: DRY SKIN PROPHYLAXIS
     Route: 061
  2. NO DRUG NAME [Concomitant]
  3. NO DRUG NAME [Concomitant]
  4. NO DRUG NAME [Concomitant]
  5. NO DRUG NAME [Concomitant]
  6. JOHNSONS BABY MEDICATED POWDER [Suspect]
     Indication: PRODUCT USED FOR UNKNOWN INDICATION
     Route: 061
  7. JOHNSON^S BABY PRODUCTS [Suspect]
     Indication: REMOVAL OF INERT MATTER FROM SKIN OR SUBCUTANEOUS TISSUE
     Route: 061
  8. NO DRUG NAME [Concomitant]
  9. NO DRUG NAME [Concomitant]

REACTIONS (1)
  - Breast cancer [Unknown]
